FAERS Safety Report 8854763 (Version 1)
Quarter: 2012Q4

REPORT INFORMATION
  Report Type: 
  Country: GR (occurrence: GR)
  Receive Date: 20121023
  Receipt Date: 20121023
  Transmission Date: 20130627
  Serious: Yes (Other)
  Sender: FDA-Public Use
  Company Number: GR-BRISTOL-MYERS SQUIBB COMPANY-17051590

PATIENT
  Age: 31 Year
  Sex: Male

DRUGS (1)
  1. PRAVACHOL [Suspect]
     Route: 048

REACTIONS (1)
  - Infertility [Unknown]
